FAERS Safety Report 5917157-3 (Version None)
Quarter: 2008Q4

REPORT INFORMATION
  Report Type: 
  Country: None (occurrence: None)
  Receive Date: 20081010
  Receipt Date: 20081010
  Transmission Date: 20090506
  Serious: Yes (Other)
  Sender: FDA-Public Use
  Company Number: None

PATIENT
  Sex: Male

DRUGS (1)
  1. GASTROGRAFIN [Suspect]
     Dosage: 30ML 7.5ML/30MIN PO
     Route: 048

REACTIONS (1)
  - PRODUCT QUALITY ISSUE [None]
